FAERS Safety Report 10912640 (Version 1)
Quarter: 2015Q1

REPORT INFORMATION
  Report Type: Report from Study
  Country: US (occurrence: US)
  Receive Date: 20150313
  Receipt Date: 20150313
  Transmission Date: 20150721
  Serious: Yes (Other)
  Sender: FDA-Public Use
  Company Number: US-AMGEN-USASL2015022694

PATIENT
  Age: 53 Year
  Sex: Female

DRUGS (2)
  1. ENBREL [Suspect]
     Active Substance: ETANERCEPT
     Indication: RHEUMATOID ARTHRITIS
     Dosage: 50 MG, QWK
     Route: 058
     Dates: start: 20140321
  2. TRAMADOL [Suspect]
     Active Substance: TRAMADOL
     Indication: PRODUCT USED FOR UNKNOWN INDICATION
     Dosage: 2 TABS EVERY 4 HOURS
     Route: 065

REACTIONS (6)
  - Rheumatoid arthritis [Unknown]
  - Dyspnoea [Not Recovered/Not Resolved]
  - Drug effect incomplete [Unknown]
  - Presyncope [Unknown]
  - Burning sensation [Unknown]
  - Hyperventilation [Unknown]

NARRATIVE: CASE EVENT DATE: 201502
